FAERS Safety Report 23933235 (Version 1)
Quarter: 2024Q2

REPORT INFORMATION
  Report Type: Spontaneous
  Country: FR (occurrence: FR)
  Receive Date: 20240603
  Receipt Date: 20240603
  Transmission Date: 20240716
  Serious: Yes (Death)
  Sender: FDA-Public Use
  Company Number: None

PATIENT
  Age: 57 Year
  Sex: Female
  Weight: 60 kg

DRUGS (13)
  1. CLOZAPINE [Suspect]
     Active Substance: CLOZAPINE
     Indication: Schizophrenia
     Dosage: 300 MILLIGRAM, QD
     Route: 048
     Dates: start: 20240119, end: 20240120
  2. CLOZAPINE [Suspect]
     Active Substance: CLOZAPINE
     Dosage: 200 MILLIGRAM, QD
     Route: 048
     Dates: start: 20240112, end: 20240114
  3. CLOZAPINE [Suspect]
     Active Substance: CLOZAPINE
     Dosage: 100 MILLIGRAM, QD
     Route: 048
     Dates: start: 20240105, end: 20240108
  4. CLOZAPINE [Suspect]
     Active Substance: CLOZAPINE
     Dosage: 25 MILLIGRAM, QD
     Route: 048
     Dates: start: 20231229, end: 20231229
  5. CLOZAPINE [Suspect]
     Active Substance: CLOZAPINE
     Dosage: 150 MILLIGRAM, QD
     Route: 048
     Dates: start: 20240109, end: 20240111
  6. CLOZAPINE [Suspect]
     Active Substance: CLOZAPINE
     Dosage: 50 MILLIGRAM, QD
     Route: 048
     Dates: start: 20231230, end: 20240101
  7. CLOZAPINE [Suspect]
     Active Substance: CLOZAPINE
     Dosage: 250 MILLIGRAM, QD
     Route: 048
     Dates: start: 20240115, end: 20240119
  8. CLOZAPINE [Suspect]
     Active Substance: CLOZAPINE
     Dosage: 75 MILLIGRAM, QD
     Route: 048
     Dates: start: 20240102, end: 20240104
  9. DIAZEPAM [Concomitant]
     Active Substance: DIAZEPAM
     Dosage: UNK
     Route: 065
  10. LOXAPINE [Concomitant]
     Active Substance: LOXAPINE
     Dosage: UNK
     Route: 065
  11. KARDEGIC [Concomitant]
     Active Substance: ASPIRIN DL-LYSINE
     Dosage: POWDER FOR ORAL SOLUTION IN SACHET
     Route: 065
  12. CLOMIPRAMINE [Concomitant]
     Active Substance: CLOMIPRAMINE
     Dosage: UNK
     Route: 065
  13. TROPATEPINE HYDROCHLORIDE [Concomitant]
     Active Substance: TROPATEPINE HYDROCHLORIDE
     Dosage: UNK
     Route: 065

REACTIONS (1)
  - Gastrointestinal necrosis [Fatal]

NARRATIVE: CASE EVENT DATE: 20240120
